FAERS Safety Report 17967256 (Version 1)
Quarter: 2020Q3

REPORT INFORMATION
  Report Type: Spontaneous
  Country: IT (occurrence: IT)
  Receive Date: 20200701
  Receipt Date: 20200701
  Transmission Date: 20201103
  Serious: Yes (Other)
  Sender: FDA-Public Use
  Company Number: NVSC2020IT183423

PATIENT
  Age: 11 Year
  Sex: Female

DRUGS (1)
  1. CANAKINUMAB. [Suspect]
     Active Substance: CANAKINUMAB
     Indication: PERICARDITIS
     Dosage: 2.5 MG/KG/DOSE
     Route: 065

REACTIONS (2)
  - Product use in unapproved indication [Unknown]
  - Pericarditis [Recovered/Resolved]
